FAERS Safety Report 4314813-8 (Version None)
Quarter: 2004Q1

REPORT INFORMATION
  Report Type: 
  Country: None (occurrence: None)
  Receive Date: 20040308
  Receipt Date: 20040717
  Transmission Date: 20041129
  Serious: Yes (Life-Threatening, Other)
  Sender: FDA-Public Use
  Company Number: 805#8#2004-00001

PATIENT
  Age: 38 Year
  Sex: Male

DRUGS (20)
  1. ALPROSTADIL [Suspect]
     Indication: THROMBOSIS PROPHYLAXIS
     Dosage: 1000 MCG (1000MCG 1 IN 1 DAY(S))
     Route: 013
     Dates: start: 20030106, end: 20030117
  2. ALPROSTADIL [Suspect]
     Indication: THROMBOSIS PROPHYLAXIS
     Dosage: 1000 MCG (1000MCG 1 IN 1 DAY(S))
     Route: 013
     Dates: start: 20030118, end: 20030118
  3. ALPROSTADIL [Suspect]
     Indication: THROMBOSIS PROPHYLAXIS
     Dosage: 1000 MCG (1000MCG 1 IN 1 DAY(S))
     Route: 013
     Dates: start: 20030119, end: 20030119
  4. ALPROSTADIL [Suspect]
     Indication: THROMBOSIS PROPHYLAXIS
     Dosage: 1000 MCG (1000MCG 1 IN 1 DAY(S))
     Route: 013
     Dates: start: 20030123
  5. CYCLOPHOSPHAMIDE [Suspect]
     Indication: IMMUNOSUPPRESSANT DRUG THERAPY
     Dosage: 100 MG
     Route: 048
     Dates: start: 20030108, end: 20030108
  6. CYCLOPHOSPHAMIDE [Suspect]
     Indication: IMMUNOSUPPRESSANT DRUG THERAPY
     Dosage: 100 MG
     Route: 048
     Dates: start: 20030111, end: 20030131
  7. TACROLIMUS-HYDRATE (TACROLIMUS) [Suspect]
     Dosage: 3 MG
     Route: 048
     Dates: start: 20030105, end: 20030108
  8. TRANSFUSION SOLUTION () [Suspect]
     Route: 013
     Dates: start: 20030106, end: 20030117
  9. TRANSFUSION SOLUTION () [Suspect]
     Route: 013
     Dates: start: 20030123
  10. TEICOPLANIN (TEICOPLANIN) [Concomitant]
  11. CEFAZOLIN SODIUM [Concomitant]
  12. IMIPENEM/CILASTATIN-SODIUM (CILASTATIN, IMIPENEM) [Concomitant]
  13. SULFAMETHOXAZOLE + TRIMETHOPRIM [Concomitant]
  14. OMEPRAZOLE-SODIUM (OMEPRAZOLE) [Concomitant]
  15. GANCICLOVIR (GANCICLOVIR SODIUM) [Concomitant]
  16. MICAFUNGIN-SODIUM () [Concomitant]
  17. WARFARIN-POTASSIUM (WARFARIN) [Concomitant]
  18. DALTEPARIN-SODIUM (HEPARIN-FRACTION, SODIUM SALT) [Concomitant]
  19. METHYLPREDNISOLONE [Concomitant]
  20. METHYLPREDNISOLONE-SODIUM-CARBONATE (METHYLPREDNISOLONE SODIUM SUCCINA [Concomitant]

REACTIONS (16)
  - ABDOMINAL HAEMATOMA [None]
  - ABDOMINAL INFECTION [None]
  - BLOOD CREATININE INCREASED [None]
  - BLOOD UREA INCREASED [None]
  - C-REACTIVE PROTEIN INCREASED [None]
  - COMPLICATIONS OF TRANSPLANT SURGERY [None]
  - HAEMATOCRIT DECREASED [None]
  - HAEMODIALYSIS [None]
  - HAEMORRHAGIC DIATHESIS [None]
  - HAEMOTHORAX [None]
  - INTRA-ABDOMINAL HAEMORRHAGE [None]
  - LIVER TRANSPLANT REJECTION [None]
  - OPERATIVE HAEMORRHAGE [None]
  - PLATELET COUNT DECREASED [None]
  - PLEURAL EFFUSION [None]
  - WHITE BLOOD CELL COUNT INCREASED [None]
